FAERS Safety Report 20491952 (Version 2)
Quarter: 2022Q1

REPORT INFORMATION
  Report Type: Report from Study
  Country: CZ (occurrence: CZ)
  Receive Date: 20220218
  Receipt Date: 20220221
  Transmission Date: 20220424
  Serious: Yes (Death, Other)
  Sender: FDA-Public Use
  Company Number: CZ-ABBVIE-22K-217-4284541-00

PATIENT
  Age: 74 Year
  Sex: Female

DRUGS (1)
  1. HUMIRA [Suspect]
     Active Substance: ADALIMUMAB
     Indication: Rheumatoid arthritis
     Route: 058
     Dates: start: 20190408

REACTIONS (2)
  - Death [Fatal]
  - Aortic dissection [Unknown]

NARRATIVE: CASE EVENT DATE: 20210609
